FAERS Safety Report 5801343-7 (Version None)
Quarter: 2008Q2

REPORT INFORMATION
  Report Type: 
  Country: None (occurrence: None)
  Receive Date: 20080626
  Receipt Date: 20080304
  Transmission Date: 20081010
  Serious: Yes (Other)
  Sender: FDA-Public Use
  Company Number: 551236

PATIENT
  Age: 77 Year
  Sex: Male

DRUGS (2)
  1. XELODA [Suspect]
     Indication: DRUG USE FOR UNKNOWN INDICATION
     Dates: start: 20080101
  2. BABY ASPIRIN (ASA) [Concomitant]

REACTIONS (3)
  - FOOD POISONING [None]
  - NERVE INJURY [None]
  - PERIPHERAL NERVE INJURY [None]
